FAERS Safety Report 24420785 (Version 2)
Quarter: 2024Q4

REPORT INFORMATION
  Report Type: Spontaneous
  Country: CN (occurrence: CN)
  Receive Date: 20241010
  Receipt Date: 20241018
  Transmission Date: 20250114
  Serious: No
  Sender: ROCHE
  Company Number: CN-BoehringerIngelheim-2024-BI-028060

PATIENT
  Age: 88 Year
  Sex: Male
  Weight: 68.0 kg

DRUGS (3)
  1. ALTEPLASE [Suspect]
     Active Substance: ALTEPLASE
     Indication: Cerebral infarction
     Route: 042
     Dates: start: 20240504, end: 20240504
  2. ALTEPLASE [Suspect]
     Active Substance: ALTEPLASE
     Indication: Cerebral artery occlusion
     Route: 042
     Dates: start: 20240504, end: 20240504
  3. ALTEPLASE [Suspect]
     Active Substance: ALTEPLASE
     Indication: Cerebral artery stenosis

REACTIONS (2)
  - Gingival bleeding [Recovered/Resolved]
  - Off label use [Unknown]

NARRATIVE: CASE EVENT DATE: 20240504
